FAERS Safety Report 18962949 (Version 1)
Quarter: 2021Q1

REPORT INFORMATION
  Report Type: Spontaneous
  Country: US (occurrence: US)
  Receive Date: 20210302
  Receipt Date: 20210302
  Transmission Date: 20210420
  Serious: Yes (Life-Threatening, Disabling, Other)
  Sender: FDA-Public Use
  Company Number: None

PATIENT
  Age: 72 Year
  Sex: Female
  Weight: 62.6 kg

DRUGS (39)
  1. PROHANCE [Suspect]
     Active Substance: GADOTERIDOL
     Indication: PRODUCT USED FOR UNKNOWN INDICATION
     Dates: start: 20080911, end: 20180613
  2. MULTIHANCE [Suspect]
     Active Substance: GADOBENATE DIMEGLUMINE
  3. IBUPROFEN. [Concomitant]
     Active Substance: IBUPROFEN
  4. ASTAXANTHIN [Concomitant]
     Active Substance: ASTAXANTHIN
  5. LACTOSE [Concomitant]
     Active Substance: LACTOSE
  6. PAROXETINE HCL [Concomitant]
     Active Substance: PAROXETINE HYDROCHLORIDE
  7. D?MANNOSE [Concomitant]
  8. VITAMIN C [Concomitant]
     Active Substance: ASCORBIC ACID
  9. MAGNEVIST [Suspect]
     Active Substance: GADOPENTETATE DIMEGLUMINE
  10. MUPIROCIN. [Concomitant]
     Active Substance: MUPIROCIN
  11. COPPER [Concomitant]
     Active Substance: COPPER
  12. METOCLAPRAMIDE [Concomitant]
  13. NIACINAMDIE [Concomitant]
  14. VITAMIN K [Concomitant]
     Active Substance: PHYTONADIONE
  15. GADAVIST [Suspect]
     Active Substance: GADOBUTROL
  16. PROCHLORPERAZINE. [Concomitant]
     Active Substance: PROCHLORPERAZINE
  17. PAROETINE [Concomitant]
  18. GADOLINIUM?CONTAINING CONTRAST MEDIA [Concomitant]
  19. LIDOCAINE. [Concomitant]
     Active Substance: LIDOCAINE
  20. FISH OIL [Concomitant]
     Active Substance: FISH OIL
  21. PRINROSE [Concomitant]
  22. ALPHA LIPAIC ACID [Concomitant]
  23. COENZYME Q10 [Concomitant]
     Active Substance: DIETARY SUPPLEMENT\UBIDECARENONE
  24. NEOMYCIN. [Concomitant]
     Active Substance: NEOMYCIN
  25. MAGNESIUM GLYCINATE [Concomitant]
     Active Substance: MAGNESIUM GLYCINATE
  26. P?5?P [Concomitant]
  27. PAPAYA EBZEME [Concomitant]
  28. ZINC PICOLINATE [Concomitant]
     Active Substance: ZINC PICOLINATE
  29. LORAZEPAM. [Concomitant]
     Active Substance: LORAZEPAM
  30. METOCLOPRAMIDE HCL [Concomitant]
     Active Substance: METOCLOPRAMIDE HYDROCHLORIDE
  31. TRAZODONE [Concomitant]
     Active Substance: TRAZODONE HYDROCHLORIDE
  32. BUPIVACINE (PF) [Concomitant]
  33. GARLIC EXTRACT [Concomitant]
     Active Substance: GARLIC
  34. ONDANSETRON HCL [Concomitant]
     Active Substance: ONDANSETRON HYDROCHLORIDE
  35. LACTASE [Concomitant]
     Active Substance: LACTASE
  36. VEGETABLE DERIVED [Concomitant]
  37. PYRIDOXINE [Concomitant]
     Active Substance: PYRIDOXINE
  38. TUREMIC CURCUMIN W/BIOPRINE [Concomitant]
  39. BLACK ELDERBERRY [Concomitant]

REACTIONS (3)
  - Toxicity to various agents [None]
  - Muscle injury [None]
  - Nerve injury [None]

NARRATIVE: CASE EVENT DATE: 20200201
